FAERS Safety Report 22060623 (Version 1)
Quarter: 2023Q1

REPORT INFORMATION
  Report Type: Spontaneous
  Country: CN (occurrence: CN)
  Receive Date: 20230303
  Receipt Date: 20230303
  Transmission Date: 20230418
  Serious: Yes (Hospitalization, Other)
  Sender: FDA-Public Use
  Company Number: CN-SA-SAC20230228001608

PATIENT
  Age: 83 Year
  Sex: Male

DRUGS (6)
  1. ALPROSTADIL [Suspect]
     Active Substance: ALPROSTADIL
     Indication: Embolism arterial
     Dosage: 10 UG, QD
     Route: 041
     Dates: start: 20230129, end: 20230218
  2. RIVAROXABAN [Suspect]
     Active Substance: RIVAROXABAN
     Indication: Embolism arterial
     Dosage: 10MG , QD
     Route: 048
     Dates: start: 20230203
  3. HERBALS [Suspect]
     Active Substance: HERBALS
     Indication: Embolism arterial
     Dosage: 400 MG, QD
     Route: 041
     Dates: start: 20230129, end: 20230208
  4. CLOPIDOGREL BISULFATE [Suspect]
     Active Substance: CLOPIDOGREL BISULFATE
     Indication: Embolism arterial
     Dosage: 75 MG, QD
     Route: 048
     Dates: start: 20230130, end: 20230209
  5. SODIUM CHLORIDE [Concomitant]
     Active Substance: SODIUM CHLORIDE
     Indication: Fluid replacement
     Dosage: 100 ML, QD
     Route: 041
     Dates: start: 20230129, end: 20230218
  6. SODIUM CHLORIDE [Concomitant]
     Active Substance: SODIUM CHLORIDE
     Dosage: 250 ML, QD
     Route: 041
     Dates: start: 20230129, end: 20230208

REACTIONS (7)
  - Pollakiuria [Recovering/Resolving]
  - Dysuria [Recovering/Resolving]
  - Micturition urgency [Recovering/Resolving]
  - Urinary retention [Recovering/Resolving]
  - Chromaturia [Recovering/Resolving]
  - Haematuria [Recovering/Resolving]
  - Abdominal pain [Recovering/Resolving]

NARRATIVE: CASE EVENT DATE: 20230206
